FAERS Safety Report 24076235 (Version 1)
Quarter: 2024Q3

REPORT INFORMATION
  Report Type: Spontaneous
  Country: US (occurrence: US)
  Receive Date: 20240711
  Receipt Date: 20240711
  Transmission Date: 20241017
  Serious: Yes (Other)
  Sender: AUROBINDO
  Company Number: US-AUROBINDO-AUR-APL-2024-032869

PATIENT
  Age: 76 Year
  Sex: Male

DRUGS (13)
  1. ADENOSINE [Suspect]
     Active Substance: ADENOSINE
     Indication: Myocarditis
     Dosage: UNK
     Route: 065
  2. ADENOSINE [Suspect]
     Active Substance: ADENOSINE
     Indication: Myositis
  3. AMIODARONE HYDROCHLORIDE [Suspect]
     Active Substance: AMIODARONE HYDROCHLORIDE
     Indication: Product used for unknown indication
     Dosage: UNK
     Route: 065
  4. LIDOCAINE [Suspect]
     Active Substance: LIDOCAINE
     Indication: Myocarditis
     Dosage: UNK
     Route: 065
  5. LIDOCAINE [Suspect]
     Active Substance: LIDOCAINE
     Indication: Myositis
  6. PROCAINAMIDE HYDROCHLORIDE [Suspect]
     Active Substance: PROCAINAMIDE HYDROCHLORIDE
     Indication: Myocarditis
     Dosage: UNK
     Route: 065
  7. PROCAINAMIDE HYDROCHLORIDE [Suspect]
     Active Substance: PROCAINAMIDE HYDROCHLORIDE
     Indication: Myositis
  8. HEPARIN [Suspect]
     Active Substance: HEPARIN SODIUM
     Indication: Myocarditis
     Dosage: UNK
     Route: 065
  9. HEPARIN [Suspect]
     Active Substance: HEPARIN SODIUM
     Indication: Dyspnoea
  10. HEPARIN [Suspect]
     Active Substance: HEPARIN SODIUM
     Indication: Troponin increased
  11. IPILIMUMAB [Concomitant]
     Active Substance: IPILIMUMAB
     Indication: Malignant melanoma
     Dosage: 100 MILLIGRAM
     Route: 065
  12. NIVOLUMAB [Concomitant]
     Active Substance: NIVOLUMAB
     Indication: Malignant melanoma
     Dosage: 300 MILLIGRAM
     Route: 065
  13. METHYLPREDNISOLONE [Concomitant]
     Active Substance: METHYLPREDNISOLONE
     Indication: Product used for unknown indication
     Dosage: UNK
     Route: 065

REACTIONS (1)
  - Drug ineffective [Unknown]
